FAERS Safety Report 4926788-9 (Version None)
Quarter: 2006Q1

REPORT INFORMATION
  Report Type: 
  Country: None (occurrence: None)
  Receive Date: 20060228
  Receipt Date: 20050615
  Transmission Date: 20060701
  Serious: Yes (Other)
  Sender: FDA-Public Use
  Company Number: US-GLAXOSMITHKLINE-A0562793A

PATIENT
  Age: 41 Year
  Sex: Male
  Weight: 86.4 kg

DRUGS (3)
  1. LAMICTAL [Suspect]
     Dosage: 25MG PER DAY
     Route: 048
     Dates: start: 20050602
  2. ATIVAN [Concomitant]
  3. M.V.I. [Concomitant]

REACTIONS (5)
  - ALANINE AMINOTRANSFERASE INCREASED [None]
  - ASPARTATE AMINOTRANSFERASE INCREASED [None]
  - FATIGUE [None]
  - HEPATIC FUNCTION ABNORMAL [None]
  - LYMPHADENOPATHY [None]
